FAERS Safety Report 5514167-5 (Version None)
Quarter: 2007Q4

REPORT INFORMATION
  Report Type: 
  Country: None (occurrence: None)
  Receive Date: 20071106
  Receipt Date: 20070626
  Transmission Date: 20080405
  Serious: Yes (Hospitalization, Other)
  Sender: FDA-Public Use
  Company Number: US200611001331

PATIENT
  Age: 65 Year
  Sex: Female

DRUGS (4)
  1. CYMBALTA [Suspect]
     Indication: MAJOR DEPRESSION
  2. PROZAC [Suspect]
  3. HYPNOTICS AND SEDATIVES [Concomitant]
  4. ALCOHOL (ETHANOL) [Concomitant]

REACTIONS (2)
  - PAIN [None]
  - SUICIDE ATTEMPT [None]
